FAERS Safety Report 5290639-6 (Version None)
Quarter: 2007Q2

REPORT INFORMATION
  Report Type: 
  Country: None (occurrence: None)
  Receive Date: 20070409
  Receipt Date: 20070403
  Transmission Date: 20071010
  Serious: Yes (Other)
  Sender: FDA-Public Use
  Company Number: US-GLAXOSMITHKLINE-A0645769A

PATIENT
  Age: 75 Year
  Sex: Male

DRUGS (2)
  1. AMOXICILLIN + CLAVULANATE POTASSIUM [Suspect]
     Indication: SINUSITIS
     Route: 048
     Dates: start: 20070207, end: 20070221
  2. NASONEX [Concomitant]

REACTIONS (10)
  - CHOLECYSTITIS [None]
  - CHOLELITHIASIS [None]
  - CHROMATURIA [None]
  - ERYTHEMA [None]
  - JAUNDICE [None]
  - LOCAL SWELLING [None]
  - PRURITUS [None]
  - RASH [None]
  - SKIN LACERATION [None]
  - WEIGHT DECREASED [None]
